FAERS Safety Report 6264479-5 (Version None)
Quarter: 2009Q3

REPORT INFORMATION
  Report Type: 
  Country: None (occurrence: None)
  Receive Date: 20090710
  Receipt Date: 20090630
  Transmission Date: 20100115
  Serious: Yes (Other)
  Sender: FDA-Public Use
  Company Number: US-ASTRAZENECA-2009UW18286

PATIENT
  Age: 83 Year
  Sex: Female
  Weight: 52.2 kg

DRUGS (3)
  1. CRESTOR [Suspect]
     Route: 048
  2. MACROBID [Concomitant]
  3. ASPIRIN [Concomitant]

REACTIONS (2)
  - DYSKINESIA [None]
  - URINARY TRACT INFECTION [None]
